FAERS Safety Report 6467268-1 (Version None)
Quarter: 2009Q4

REPORT INFORMATION
  Report Type: 
  Country: None (occurrence: None)
  Receive Date: 20091202
  Receipt Date: 20091116
  Transmission Date: 20100525
  Serious: No
  Sender: FDA-Public Use
  Company Number: US-B.I. PHARMACEUTICALS,INC./RIDGEFIELD-2009-BP-13363BP

PATIENT
  Sex: Female

DRUGS (7)
  1. COMBIVENT [Suspect]
     Indication: BRONCHITIS CHRONIC
     Dosage: 4 PUF
     Route: 055
     Dates: start: 20060101, end: 20070101
  2. VALIUM [Concomitant]
     Indication: ANXIETY
     Dosage: 20 MG
     Route: 048
  3. VISTARIL [Concomitant]
     Indication: ANXIETY
     Dosage: 100 MG
     Route: 048
  4. SEROQUEL [Concomitant]
     Indication: OBSESSIVE-COMPULSIVE DISORDER
     Dosage: 100 MG
     Route: 048
  5. SEROQUEL [Concomitant]
     Indication: BIPOLAR DISORDER
  6. SEROQUEL [Concomitant]
     Indication: DEPRESSION
  7. CELEXA [Concomitant]
     Indication: DEPRESSION
     Dosage: 80 MG
     Route: 048

REACTIONS (1)
  - TONGUE DISORDER [None]
